FAERS Safety Report 10563230 (Version 1)
Quarter: 2014Q4

REPORT INFORMATION
  Report Type: Spontaneous
  Country: US (occurrence: None)
  Receive Date: 20141103
  Receipt Date: 20141103
  Transmission Date: 20150529
  Serious: Yes (Hospitalization)
  Sender: FDA-Public Use
  Company Number: None

PATIENT
  Age: 46 Year
  Sex: Male

DRUGS (8)
  1. FAMOTIDINE. [Concomitant]
     Active Substance: FAMOTIDINE
  2. SIMETHICONE [Concomitant]
     Active Substance: DIMETHICONE\SILICON DIOXIDE\SIMETHICONE
  3. METOPROLOL [Concomitant]
     Active Substance: METOPROLOL
  4. WARFARIN [Suspect]
     Active Substance: WARFARIN
     Indication: ANTICOAGULANT THERAPY
     Route: 048
     Dates: start: 20140811, end: 20140815
  5. DOCUSATE [Concomitant]
     Active Substance: DOCUSATE
  6. HYDROMORPHONE [Concomitant]
     Active Substance: HYDROMORPHONE
  7. POLYETHYLENE GLUCOL [Concomitant]
     Active Substance: POLYETHYLENE GLYCOLS
  8. ACETAMINOPHEN. [Concomitant]
     Active Substance: ACETAMINOPHEN

REACTIONS (3)
  - International normalised ratio increased [None]
  - Abdominal pain [None]
  - Vomiting [None]

NARRATIVE: CASE EVENT DATE: 20140811
